FAERS Safety Report 15105348 (Version 1)
Quarter: 2018Q3

REPORT INFORMATION
  Report Type: Report from Study
  Country: TW (occurrence: TW)
  Receive Date: 20180704
  Receipt Date: 20180704
  Transmission Date: 20181010
  Serious: Yes (Other)
  Sender: FDA-Public Use
  Company Number: TW-ROCHE-2145312

PATIENT

DRUGS (1)
  1. ALTEPLASE. [Suspect]
     Active Substance: ALTEPLASE
     Indication: ISCHAEMIC STROKE
     Dosage: 0.6 TO 0.9 MG/KG
     Route: 042

REACTIONS (4)
  - Haemorrhagic cerebral infarction [Unknown]
  - Brain oedema [Unknown]
  - Cerebral infarction [Unknown]
  - Blood brain barrier defect [Unknown]
